FAERS Safety Report 7472445-7 (Version None)
Quarter: 2011Q2

REPORT INFORMATION
  Report Type: 
  Country: None (occurrence: None)
  Receive Date: 20110511
  Receipt Date: 20110506
  Transmission Date: 20111010
  Serious: Yes (Death)
  Sender: FDA-Public Use
  Company Number: PHHY2011US38382

PATIENT
  Sex: Male

DRUGS (3)
  1. LIPITOR [Concomitant]
  2. ASPIRIN [Concomitant]
  3. DIOVAN HCT [Suspect]
     Dosage: 160/12.5 MG, UNK

REACTIONS (1)
  - DEATH [None]
